FAERS Safety Report 5645415-9 (Version None)
Quarter: 2008Q1

REPORT INFORMATION
  Report Type: 
  Country: None (occurrence: None)
  Receive Date: 20080229
  Receipt Date: 20080225
  Transmission Date: 20080703
  Serious: Yes (Disabling)
  Sender: FDA-Public Use
  Company Number: FR-BRISTOL-MYERS SQUIBB COMPANY-14092423

PATIENT
  Age: 42 Year
  Sex: Male

DRUGS (1)
  1. KENACORT [Suspect]
     Indication: PAIN
     Dosage: STARTED WITH 40MG ON FEB06,ALSO TAKEN ON 2JAN07,26FEB07. RECEIVED 80MG IN MID APR07.
     Dates: start: 20070401

REACTIONS (2)
  - OEDEMA PERIPHERAL [None]
  - OSTEOLYSIS [None]
